FAERS Safety Report 5068583-9 (Version None)
Quarter: 2006Q3

REPORT INFORMATION
  Report Type: 
  Country: None (occurrence: None)
  Receive Date: 20060802
  Receipt Date: 20051213
  Transmission Date: 20061208
  Serious: No
  Sender: FDA-Public Use
  Company Number: US-BRISTOL-MYERS SQUIBB COMPANY-13214234

PATIENT
  Age: 75 Year
  Sex: Male
  Weight: 69 kg

DRUGS (3)
  1. WARFARIN SODIUM [Suspect]
     Dosage: 2.5 MG ALTERNATING WITH 3.75 MG DAILY
  2. LORAZEPAM [Concomitant]
     Indication: PAIN
  3. TYLENOL W/ CODEINE NO. 3 [Concomitant]
     Indication: PAIN

REACTIONS (2)
  - DIARRHOEA [None]
  - EPISTAXIS [None]
